FAERS Safety Report 25626177 (Version 2)
Quarter: 2025Q4

REPORT INFORMATION
  Report Type: Spontaneous
  Country: EU (occurrence: EU)
  Receive Date: 20250731
  Receipt Date: 20251114
  Transmission Date: 20260118
  Serious: No
  Sender: TEVA
  Company Number: EU-TEVA-VS-3292994

PATIENT
  Age: 34 Year
  Sex: Female

DRUGS (1)
  1. AJOVY [Suspect]
     Active Substance: FREMANEZUMAB-VFRM
     Indication: Product used for unknown indication
     Dosage: UNKNOWN
     Route: 065
     Dates: start: 20250128, end: 2025

REACTIONS (13)
  - Condition aggravated [Unknown]
  - Nausea [Recovering/Resolving]
  - Injection site pain [Recovered/Resolved]
  - Fatigue [Recovering/Resolving]
  - Alopecia [Unknown]
  - Injection site erythema [Recovering/Resolving]
  - Magnetic resonance imaging head abnormal [Unknown]
  - Dyspnoea [Recovering/Resolving]
  - Sinusitis [Unknown]
  - Dizziness [Recovered/Resolved]
  - Injection site pruritus [Recovering/Resolving]
  - Vomiting [Recovering/Resolving]
  - Rhinitis allergic [Recovering/Resolving]

NARRATIVE: CASE EVENT DATE: 20250101
